FAERS Safety Report 10207485 (Version 1)
Quarter: 2014Q2

REPORT INFORMATION
  Report Type: Spontaneous
  Country: IE (occurrence: IE)
  Receive Date: 20140530
  Receipt Date: 20140530
  Transmission Date: 20141212
  Serious: Yes (Death, Other)
  Sender: FDA-Public Use
  Company Number: IE-B.I. PHARMACEUTICALS,INC./RIDGEFIELD-2014-BI-23973UK

PATIENT
  Sex: Female

DRUGS (2)
  1. PRADAXA [Suspect]
     Indication: CEREBROVASCULAR ACCIDENT PROPHYLAXIS
     Route: 065
  2. PRADAXA [Suspect]
     Indication: ATRIAL FIBRILLATION

REACTIONS (4)
  - Sepsis [Fatal]
  - Intestinal obstruction [Unknown]
  - Renal impairment [Unknown]
  - Haemorrhage [Unknown]
